FAERS Safety Report 19955515 (Version 1)
Quarter: 2021Q4

REPORT INFORMATION
  Report Type: Report from Study
  Country: IN (occurrence: IN)
  Receive Date: 20211014
  Receipt Date: 20211014
  Transmission Date: 20220303
  Serious: Yes (Hospitalization)
  Sender: FDA-Public Use
  Company Number: IN-NOVARTISPH-NVSC2021IN233910

PATIENT
  Age: 30 Year
  Sex: Male

DRUGS (1)
  1. CERTICAN [Suspect]
     Active Substance: EVEROLIMUS
     Indication: Renal transplant
     Dosage: 0.5 MG, BID
     Route: 065
     Dates: start: 20210118

REACTIONS (3)
  - Coronavirus infection [Recovered/Resolved]
  - Hypertension [Unknown]
  - Anaemia [Unknown]

NARRATIVE: CASE EVENT DATE: 20210420
